FAERS Safety Report 7994275-X (Version None)
Quarter: 2011Q4

REPORT INFORMATION
  Report Type: 
  Country: None (occurrence: None)
  Receive Date: 20111220
  Receipt Date: 20111212
  Transmission Date: 20120403
  Serious: Yes (Other)
  Sender: FDA-Public Use
  Company Number: FR-JNJFOC-20110704002

PATIENT
  Age: 43 Year
  Sex: Male
  Weight: 135 kg

DRUGS (3)
  1. XARELTO [Suspect]
     Indication: ILL-DEFINED DISORDER
     Route: 048
     Dates: start: 20100413
  2. IRBESARTAN [Concomitant]
  3. ENOXAPARIN [Suspect]
     Indication: ILL-DEFINED DISORDER
     Dates: start: 20100412, end: 20100412

REACTIONS (2)
  - DEEP VEIN THROMBOSIS [None]
  - POST PROCEDURAL OEDEMA [None]
